FAERS Safety Report 15978586 (Version 1)
Quarter: 2019Q1

REPORT INFORMATION
  Report Type: Report from Study
  Country: BR (occurrence: BR)
  Receive Date: 20190219
  Receipt Date: 20190219
  Transmission Date: 20190418
  Serious: Yes (Other)
  Sender: FDA-Public Use
  Company Number: BR-UCBSA-2018031828

PATIENT
  Age: 19 Year
  Sex: Female
  Weight: 65 kg

DRUGS (3)
  1. LEVETIRACETAM. [Suspect]
     Active Substance: LEVETIRACETAM
     Indication: EPILEPSY
     Dosage: 250 MG, 3X/DAY (TID)
     Route: 048
     Dates: start: 20180612
  2. AEROLIN [Concomitant]
     Active Substance: ALBUTEROL
     Indication: ASTHMA
     Dosage: 250 MG, 4X/DAY (QID)
     Route: 048
  3. FOLIC ACID. [Concomitant]
     Active Substance: FOLIC ACID
     Indication: PREGNANCY
     Dosage: 200 MG, 2X/DAY (BID)
     Route: 048

REACTIONS (3)
  - Off label use [Unknown]
  - Epilepsy [Unknown]
  - Exposure during pregnancy [Unknown]

NARRATIVE: CASE EVENT DATE: 20180612
